FAERS Safety Report 22300517 (Version 2)
Quarter: 2023Q2

REPORT INFORMATION
  Report Type: Spontaneous
  Country: GB (occurrence: GB)
  Receive Date: 20230509
  Receipt Date: 20230516
  Transmission Date: 20230722
  Serious: Yes (Other)
  Sender: FDA-Public Use
  Company Number: GB-MYLANLABS-2023M1047728

PATIENT
  Sex: Male

DRUGS (1)
  1. CLOZARIL [Suspect]
     Active Substance: CLOZAPINE
     Indication: Schizophrenia
     Dosage: 225 MILLIGRAM
     Route: 048
     Dates: start: 20211018

REACTIONS (2)
  - Seizure [Recovered/Resolved]
  - Antipsychotic drug level decreased [Unknown]

NARRATIVE: CASE EVENT DATE: 20230425
